FAERS Safety Report 8582871-0 (Version None)
Quarter: 2012Q3

REPORT INFORMATION
  Report Type: 
  Country: None (occurrence: None)
  Receive Date: 20120809
  Receipt Date: 20120806
  Transmission Date: 20120928
  Serious: Yes (Other)
  Sender: FDA-Public Use
  Company Number: US-PFIZER INC-2012191361

PATIENT
  Age: 74 Year
  Sex: Male
  Weight: 76.1 kg

DRUGS (1)
  1. SUTENT [Suspect]
     Indication: METASTATIC RENAL CELL CARCINOMA
     Dosage: 50 MG, FOR FIVE 42 DAY CYCLES
     Dates: start: 20120201

REACTIONS (4)
  - BONE PAIN [None]
  - DRY MOUTH [None]
  - CONSTIPATION [None]
  - LIMB OPERATION [None]
